FAERS Safety Report 15123777 (Version 1)
Quarter: 2018Q3

REPORT INFORMATION
  Report Type: Spontaneous
  Country: KZ (occurrence: US)
  Receive Date: 20180710
  Receipt Date: 20180710
  Transmission Date: 20181010
  Serious: Yes (Death, Hospitalization, Other)
  Sender: FDA-Public Use
  Company Number: KZ-009507513-1807USA001106

PATIENT
  Age: 35 Year
  Sex: Male
  Weight: 73 kg

DRUGS (22)
  1. DELAMANID [Suspect]
     Active Substance: DELAMANID
     Indication: TUBERCULOSIS
     Dosage: 100 MG (50 MG 2 TABLET), BID
     Route: 048
     Dates: start: 20180212, end: 20180306
  2. BEDAQUILINE [Concomitant]
     Active Substance: BEDAQUILINE
     Dosage: UNK
     Route: 048
     Dates: start: 20180212, end: 20180306
  3. IMIPENEM AND CILASTATIN [Suspect]
     Active Substance: CILASTATIN SODIUM\IMIPENEM
     Indication: TUBERCULOSIS
     Dosage: 1000 MG, BID
     Route: 042
     Dates: start: 20180212, end: 20180215
  4. ALBUMIN HUMAN [Concomitant]
     Active Substance: ALBUMIN HUMAN
     Dosage: 10 %, UNK
     Dates: start: 20180301, end: 20180302
  5. ALBUMIN HUMAN [Concomitant]
     Active Substance: ALBUMIN HUMAN
     Dosage: 10 %, UNK
     Dates: start: 20180312, end: 20180313
  6. FUROSEMIDE. [Concomitant]
     Active Substance: FUROSEMIDE
     Indication: DIURETIC THERAPY
     Dosage: UNK
     Dates: start: 20180304, end: 20180318
  7. HEPTRAL [Concomitant]
     Active Substance: ADEMETIONINE
     Dosage: UNK
     Dates: start: 20180318, end: 20180326
  8. ESPUMISAN [Concomitant]
     Active Substance: DIMETHICONE
     Indication: FLATULENCE
     Dosage: UNK
     Dates: start: 20180327
  9. AMOXICILLIN (+) CLAVULANATE POTASSIUM [Concomitant]
     Active Substance: AMOXICILLIN\CLAVULANATE POTASSIUM
     Indication: TUBERCULOSIS
     Dosage: UNK
     Dates: start: 20180212, end: 20180306
  10. FRAXIPARINE [Concomitant]
     Active Substance: NADROPARIN CALCIUM
     Dosage: UNK
     Dates: start: 20180307, end: 20180322
  11. POTASSIUM CHLORIDE. [Concomitant]
     Active Substance: POTASSIUM CHLORIDE
     Indication: ELECTROLYTE IMBALANCE
     Dosage: 3 %, UNK
     Dates: start: 20180307, end: 20180309
  12. CORGLYCON [Concomitant]
     Indication: CARDIAC DISORDER
     Dosage: 0.6 %, UNK
     Dates: start: 20180307, end: 20180326
  13. LINEZOLID. [Concomitant]
     Active Substance: LINEZOLID
     Indication: TUBERCULOSIS
     Dosage: UNK
     Route: 048
     Dates: start: 20180212, end: 20180306
  14. ALBUMIN HUMAN [Concomitant]
     Active Substance: ALBUMIN HUMAN
     Dosage: 10 %, UNK
     Dates: start: 20180303, end: 20180304
  15. APIDRA [Concomitant]
     Active Substance: INSULIN GLULISINE
     Indication: DIABETES MELLITUS
     Dosage: UNK
     Dates: start: 20180115
  16. LANTUS [Concomitant]
     Active Substance: INSULIN GLARGINE
     Indication: DIABETES MELLITUS
     Dosage: UNK
     Dates: start: 20180115
  17. DIACARB [Concomitant]
     Indication: DIURETIC THERAPY
     Dosage: UNK
     Dates: start: 20180308, end: 20180312
  18. ALBUMIN HUMAN [Concomitant]
     Active Substance: ALBUMIN HUMAN
     Indication: HYPOALBUMINAEMIA
     Dosage: 10 %, UNK
     Dates: start: 20180328
  19. ALBUMIN HUMAN [Concomitant]
     Active Substance: ALBUMIN HUMAN
     Dosage: 10 %, UNK
     Dates: start: 20180227, end: 20180228
  20. LOPERAMIDE [Concomitant]
     Active Substance: LOPERAMIDE
     Indication: DIARRHOEA
     Dosage: UNK
     Dates: start: 20180325
  21. CLOFAZIMINE [Concomitant]
     Active Substance: CLOFAZIMINE
     Indication: TUBERCULOSIS
     Dosage: UNK
     Route: 048
     Dates: start: 20180212, end: 20180306
  22. ALDACTONE [Concomitant]
     Active Substance: SPIRONOLACTONE
     Indication: DIURETIC THERAPY
     Dosage: UNK
     Dates: start: 20180308, end: 20180310

REACTIONS (4)
  - Cardiac arrest [Fatal]
  - Cardiac failure acute [Fatal]
  - Tuberculosis [Unknown]
  - Acute respiratory failure [Fatal]

NARRATIVE: CASE EVENT DATE: 20180215
